FAERS Safety Report 10210644 (Version 1)
Quarter: 2014Q2

REPORT INFORMATION
  Report Type: Spontaneous
  Country: US (occurrence: None)
  Receive Date: 20140529
  Receipt Date: 20140529
  Transmission Date: 20141212
  Serious: No
  Sender: FDA-Public Use
  Company Number: None

PATIENT
  Age: 74 Year
  Sex: Male
  Weight: 67.1 kg

DRUGS (31)
  1. NAFCILLIN [Suspect]
     Indication: WOUND INFECTION STAPHYLOCOCCAL
     Dosage: 12 G, QD, INTRAVENOUS
     Route: 042
  2. ASPIRIN [Concomitant]
  3. ATORVASTATIN [Concomitant]
  4. BUPROPION [Concomitant]
  5. FAMOTIDINE [Concomitant]
  6. DOCUSATE [Concomitant]
  7. EPOETIN ALPHA [Concomitant]
  8. FUROSEMIDE [Concomitant]
  9. HEPARIN [Concomitant]
  10. HYDROMORPHONE [Concomitant]
  11. FLEET MINERAL OIL ENEMA [Concomitant]
  12. LEVOFLOXACIN [Concomitant]
  13. METOPROLOL [Concomitant]
  14. PANTOPRAZOLE [Concomitant]
  15. POTASSIUM CHLORIDE [Concomitant]
  16. TAMSULOSIN [Concomitant]
  17. VANCOMYCIN [Concomitant]
  18. ACETAMINOPHEN-HYDROCODONE [Concomitant]
  19. HYDRALAZINE [Concomitant]
  20. FENTANYL [Concomitant]
  21. MIDAZOLAM [Concomitant]
  22. ONDANSETRON [Concomitant]
  23. MORPHINE [Concomitant]
  24. NORMAL SALINE [Concomitant]
  25. DEXMEDETOMIDINE [Concomitant]
  26. PREMIX NS [Concomitant]
  27. NICARDIPINE [Concomitant]
  28. SODIUM CHLORIDE [Concomitant]
  29. BACITRACIN [Concomitant]
  30. POLYMYXIN B SULFATE [Concomitant]
  31. PHENYLEPHRINE [Concomitant]

REACTIONS (3)
  - Nephritis allergic [None]
  - Type IV hypersensitivity reaction [None]
  - Tubulointerstitial nephritis [None]
